FAERS Safety Report 14544655 (Version 3)
Quarter: 2024Q2

REPORT INFORMATION
  Report Type: Spontaneous
  Country: US (occurrence: US)
  Receive Date: 20180217
  Receipt Date: 20240426
  Transmission Date: 20240715
  Serious: No
  Sender: FDA-Public Use
  Company Number: US-JNJFOC-20180206176

PATIENT
  Age: 12 Year
  Sex: Male

DRUGS (6)
  1. RISPERDAL [Suspect]
     Active Substance: RISPERIDONE
     Indication: Attention deficit hyperactivity disorder
     Route: 048
     Dates: start: 20061215, end: 20091118
  2. RISPERDAL [Suspect]
     Active Substance: RISPERIDONE
     Indication: Oppositional defiant disorder
  3. RISPERDAL [Suspect]
     Active Substance: RISPERIDONE
     Indication: Depression
  4. RISPERIDONE [Suspect]
     Active Substance: RISPERIDONE
     Indication: Attention deficit hyperactivity disorder
     Route: 048
     Dates: end: 20091125
  5. RISPERIDONE [Suspect]
     Active Substance: RISPERIDONE
     Indication: Oppositional defiant disorder
  6. RISPERIDONE [Suspect]
     Active Substance: RISPERIDONE
     Indication: Depression

REACTIONS (6)
  - Emotional distress [Unknown]
  - Gynaecomastia [Unknown]
  - Fatigue [Unknown]
  - Drug ineffective for unapproved indication [Unknown]
  - Off label use [Unknown]
  - Product use in unapproved indication [Unknown]

NARRATIVE: CASE EVENT DATE: 20061215
